FAERS Safety Report 23763160 (Version 2)
Quarter: 2024Q2

REPORT INFORMATION
  Report Type: Report from Study
  Country: AU (occurrence: AU)
  Receive Date: 20240419
  Receipt Date: 20240626
  Transmission Date: 20240716
  Serious: Yes (Death)
  Sender: FDA-Public Use
  Company Number: AU-PFIZER INC-PV202400025532

PATIENT
  Age: 12 Year
  Sex: Female
  Weight: 48.55 kg

DRUGS (6)
  1. CRIZOTINIB [Suspect]
     Active Substance: CRIZOTINIB
     Indication: Brain stem glioma
     Dosage: 400 MG, 2X/DAY, (280MG/M2 BD), 2 TABLETS BD
     Route: 048
     Dates: start: 20240228, end: 20240321
  2. BEVACIZUMAB [Concomitant]
     Active Substance: BEVACIZUMAB
     Indication: Tumour pseudoprogression
     Dosage: 40 MG, WEEKLY
  3. BEVACIZUMAB [Concomitant]
     Active Substance: BEVACIZUMAB
     Indication: Brain neoplasm
  4. DEXAMETHASONE [Concomitant]
     Active Substance: DEXAMETHASONE
     Indication: Peritumoural oedema
     Dosage: 2 MG, 2X/DAY (BD)
  5. OMEPRAZOLE [Concomitant]
     Active Substance: DONEPEZIL HYDROCHLORIDE\OMEPRAZOLE\OMEPRAZOLE MAGNESIUM
     Indication: Gastrooesophageal reflux disease
     Dosage: 20 MG, DAILY
  6. ONDANSETRON [Concomitant]
     Active Substance: ONDANSETRON
     Indication: Nausea
     Dosage: 4 MG, AS NEEDED (TDS PRN)

REACTIONS (4)
  - Neoplasm progression [Fatal]
  - Diarrhoea [Not Recovered/Not Resolved]
  - Abdominal pain [Not Recovered/Not Resolved]
  - Dysphagia [Not Recovered/Not Resolved]

NARRATIVE: CASE EVENT DATE: 20240228
